FAERS Safety Report 4736946-4 (Version None)
Quarter: 2005Q3

REPORT INFORMATION
  Report Type: 
  Country: None (occurrence: None)
  Receive Date: 20050808
  Receipt Date: 20050712
  Transmission Date: 20060218
  Serious: Yes (Death, Hospitalization)
  Sender: FDA-Public Use
  Company Number: US-ROCHE-410535

PATIENT
  Age: 59 Year
  Sex: Male
  Weight: 94.3 kg

DRUGS (12)
  1. PEG-INTERFERON ALFA 2A (RO 25-8310) [Suspect]
     Dosage: FORM STATED AS LIQUID.
     Route: 058
     Dates: start: 20050428, end: 20050701
  2. RIBAVIRIN [Suspect]
     Route: 048
     Dates: start: 20050428, end: 20050701
  3. LOPRESSOR [Concomitant]
  4. ZESTRIL [Concomitant]
  5. DIGOXIN [Concomitant]
     Dosage: TUES/THURS/SAT.
  6. MILK THISTLE [Concomitant]
  7. DANDELION [Concomitant]
  8. ASCORBIC ACID [Concomitant]
  9. FOLIC ACID [Concomitant]
  10. ASPIRIN [Concomitant]
  11. RENAGEL [Concomitant]
  12. PHOSLO [Concomitant]

REACTIONS (4)
  - COUGH [None]
  - FATIGUE [None]
  - PYREXIA [None]
  - THROAT IRRITATION [None]
